FAERS Safety Report 16337650 (Version 1)
Quarter: 2019Q2

REPORT INFORMATION
  Report Type: Report from Study
  Country: None (occurrence: BR)
  Receive Date: 20190521
  Receipt Date: 20190521
  Transmission Date: 20190711
  Serious: Yes (Other)
  Sender: FDA-Public Use
  Company Number: BR-ABBVIE-18P-020-2538297-00

PATIENT
  Sex: Female
  Weight: 80 kg

DRUGS (5)
  1. DEPAKOTE ER [Suspect]
     Active Substance: DIVALPROEX SODIUM
     Indication: ANXIETY
  2. HYDROCHLOROTHIAZIDE. [Concomitant]
     Active Substance: HYDROCHLOROTHIAZIDE
     Indication: BLOOD PRESSURE ABNORMAL
  3. CLONAZEPAM. [Concomitant]
     Active Substance: CLONAZEPAM
     Indication: SLEEP DISORDER THERAPY
     Dosage: 1 TABLET AT NIGHT
     Dates: start: 2005
  4. DEPAKOTE ER [Suspect]
     Active Substance: DIVALPROEX SODIUM
     Indication: COMPULSIVE SHOPPING
     Dosage: 1 TABLET AT NIGHT, WHEN SHE IS BETTER
     Route: 048
     Dates: start: 201805, end: 2018
  5. DEPAKOTE ER [Suspect]
     Active Substance: DIVALPROEX SODIUM
     Indication: AGORAPHOBIA
     Dosage: 1 TABLET IN THE MORNING AND ONE AT NIGHT, WHEN SHE IS FEELING BAD
     Route: 048
     Dates: start: 201805, end: 2018

REACTIONS (5)
  - Blood pressure increased [Not Recovered/Not Resolved]
  - Heart rate increased [Not Recovered/Not Resolved]
  - Daydreaming [Recovered/Resolved]
  - Product use in unapproved indication [Unknown]
  - Product use issue [Unknown]
